FAERS Safety Report 10891430 (Version 5)
Quarter: 2015Q2

REPORT INFORMATION
  Report Type: Report from Study
  Country: JP (occurrence: JP)
  Receive Date: 20150306
  Receipt Date: 20150513
  Transmission Date: 20150821
  Serious: Yes (Death, Hospitalization, Other)
  Sender: FDA-Public Use
  Company Number: JP-ASTRAZENECA-2015SE19277

PATIENT
  Age: 707 Month
  Sex: Male
  Weight: 65.5 kg

DRUGS (18)
  1. CODEINE PHOSPHATE [Concomitant]
     Active Substance: CODEINE PHOSPHATE
     Route: 048
     Dates: start: 20150120, end: 20150126
  2. BUSCOPAN [Concomitant]
     Active Substance: BUTYLSCOPOLAMINE BROMIDE
     Dates: start: 20150127, end: 20150127
  3. SOLITA(SODIUM CHLORIDE, POTASSIUM CHLORIDE, SODIUM LLACTATE, GLUCOSE) [Concomitant]
     Dates: start: 20150127, end: 20150201
  4. CRESTOR [Concomitant]
     Active Substance: ROSUVASTATIN CALCIUM
     Indication: DYSLIPIDAEMIA
     Route: 048
     Dates: start: 20140109, end: 20150126
  5. ADONA [Concomitant]
     Active Substance: CARBAZOCHROME SODIUM SULFONATE
     Route: 048
     Dates: start: 20150116, end: 20150125
  6. ZOLPIDEM TABRATE [Concomitant]
     Route: 048
     Dates: start: 20150120, end: 20150131
  7. BERAPROST [Concomitant]
     Active Substance: BERAPROST
     Indication: DISEASE COMPLICATION
     Route: 048
     Dates: start: 20110120, end: 20150120
  8. ACETAMINOPHEN. [Concomitant]
     Active Substance: ACETAMINOPHEN
     Route: 042
     Dates: start: 20150127, end: 20150127
  9. LOXOPROFEN NA [Concomitant]
     Active Substance: LOXOPROFEN SODIUM
     Dates: start: 20150127, end: 20150201
  10. NEXIUM [Concomitant]
     Active Substance: ESOMEPRAZOLE MAGNESIUM
     Dates: start: 20150127, end: 20150131
  11. VNASYN [Concomitant]
     Route: 048
     Dates: start: 20150116, end: 20150119
  12. ADONA INJECTION [Concomitant]
     Dates: start: 20150126, end: 20150127
  13. LACTEC [Concomitant]
     Active Substance: CALCIUM CHLORIDE ANHYDROUS\POTASSIUM CHLORIDE\SODIUM CHLORIDE\SODIUM LACTATE
     Dates: start: 20150126, end: 20150126
  14. HEPARIN [Concomitant]
     Active Substance: HEPARIN SODIUM
     Dates: start: 20150128, end: 20150128
  15. AZD6140 [Suspect]
     Active Substance: TICAGRELOR
     Indication: PERIPHERAL ARTERIAL OCCLUSIVE DISEASE
     Route: 048
     Dates: start: 20130711, end: 20150120
  16. ADONA INJECTION [Concomitant]
     Dates: start: 20150128, end: 20150201
  17. PLETAAL [Concomitant]
     Active Substance: CILOSTAZOL
     Indication: DISEASE COMPLICATION
     Route: 048
     Dates: start: 20070718, end: 20150120
  18. PRIMPERAN [Concomitant]
     Active Substance: METOCLOPRAMIDE HYDROCHLORIDE
     Dates: start: 20150126, end: 20150128

REACTIONS (2)
  - Lung adenocarcinoma [Fatal]
  - Gastrointestinal haemorrhage [Not Recovered/Not Resolved]

NARRATIVE: CASE EVENT DATE: 201501
